FAERS Safety Report 16050205 (Version 1)
Quarter: 2019Q1

REPORT INFORMATION
  Report Type: Spontaneous
  Country: US (occurrence: US)
  Receive Date: 20190308
  Receipt Date: 20190308
  Transmission Date: 20190418
  Serious: No
  Sender: FDA-Public Use
  Company Number: US-BIOGEN-2018BI00674200

PATIENT
  Sex: Male

DRUGS (16)
  1. CIPRO [Concomitant]
     Active Substance: CIPROFLOXACIN HYDROCHLORIDE
     Route: 050
  2. FIORICET [Concomitant]
     Active Substance: ACETAMINOPHEN\BUTALBITAL\CAFFEINE
     Route: 050
  3. OXYCODONE HYDROCHLORIDE. [Concomitant]
     Active Substance: OXYCODONE HYDROCHLORIDE
     Route: 050
  4. PREDNISONE. [Concomitant]
     Active Substance: PREDNISONE
     Route: 050
  5. TRAMADOL HCL ER [Concomitant]
     Route: 050
  6. BREO ELLIPTA [Concomitant]
     Active Substance: FLUTICASONE FUROATE\VILANTEROL TRIFENATATE
     Route: 050
  7. KLONOPIN [Concomitant]
     Active Substance: CLONAZEPAM
     Route: 050
  8. LEVITRA [Concomitant]
     Active Substance: VARDENAFIL HYDROCHLORIDE TRIHYDRATE
     Route: 050
  9. NAPROXEN. [Concomitant]
     Active Substance: NAPROXEN
     Route: 050
  10. OMEPRAZOLE. [Concomitant]
     Active Substance: OMEPRAZOLE
     Route: 050
  11. AVONEX [Suspect]
     Active Substance: INTERFERON BETA-1A
     Indication: MULTIPLE SCLEROSIS
     Route: 050
     Dates: start: 20140410
  12. PROVIGIL [Concomitant]
     Active Substance: MODAFINIL
     Route: 050
  13. GABAPENTIN. [Concomitant]
     Active Substance: GABAPENTIN
     Route: 050
  14. FLONASE ALLERGY RELIEF [Concomitant]
     Active Substance: FLUTICASONE PROPIONATE
     Route: 050
  15. LYRICA [Concomitant]
     Active Substance: PREGABALIN
     Route: 050
  16. AVONEX [Suspect]
     Active Substance: INTERFERON BETA-1A
     Route: 065
     Dates: start: 20170701

REACTIONS (1)
  - Multiple sclerosis relapse [Not Recovered/Not Resolved]

NARRATIVE: CASE EVENT DATE: 2018
